FAERS Safety Report 10610210 (Version 2)
Quarter: 2014Q4

REPORT INFORMATION
  Report Type: Spontaneous
  Country: IN (occurrence: None)
  Receive Date: 20141124
  Receipt Date: 20141204
  Transmission Date: 20150529
  Serious: Yes (Other)
  Sender: FDA-Public Use
  Company Number: FK201405460

PATIENT

DRUGS (4)
  1. ISOTRETINOIN [Suspect]
     Active Substance: ISOTRETINOIN
     Indication: BRAIN NEOPLASM MALIGNANT
     Dosage: LOW DOSE
     Route: 048
  2. TEMOZOLOMIDE (MANUFACTURER UNKNOWN) (TEMOZOLOMIDE) (TEMOZOLOMIDE) [Suspect]
     Active Substance: TEMOZOLOMIDE
     Indication: BRAIN NEOPLASM MALIGNANT
     Dosage: LOW DOSE
     Route: 048
  3. ETOPOSIDE. [Suspect]
     Active Substance: ETOPOSIDE
     Indication: BRAIN NEOPLASM MALIGNANT
     Dosage: LOW DOSE
     Route: 048
  4. VALPROATE (MANUFACTURER UNKNOWN) (VALPROATE SODIUM) (VALPROATE SODIUM) [Suspect]
     Active Substance: VALPROATE SODIUM
     Indication: BRAIN NEOPLASM MALIGNANT
     Dosage: LOW DOSE
     Route: 048

REACTIONS (1)
  - Myelodysplastic syndrome [None]
